FAERS Safety Report 9747249 (Version 2)
Quarter: 2013Q4

REPORT INFORMATION
  Report Type: Report from Study
  Country: PL (occurrence: PL)
  Receive Date: 20131212
  Receipt Date: 20131212
  Transmission Date: 20140711
  Serious: Yes (Hospitalization, Other)
  Sender: FDA-Public Use
  Company Number: PL-ROCHE-789718

PATIENT
  Age: 51 Year
  Sex: Male
  Weight: 76 kg

DRUGS (5)
  1. RITUXIMAB [Suspect]
     Indication: CHRONIC LYMPHOCYTIC LEUKAEMIA
     Dosage: FREQUENCY: 1X
     Route: 042
     Dates: start: 20110216, end: 20110412
  2. CLADRIBINE [Suspect]
     Indication: CHRONIC LYMPHOCYTIC LEUKAEMIA
     Dosage: FREQUENCY: 3X
     Route: 042
     Dates: start: 20110217, end: 20110415
  3. CYCLOPHOSPHAMIDE [Suspect]
     Indication: CHRONIC LYMPHOCYTIC LEUKAEMIA
     Dosage: FREQUENCY: 3X
     Route: 042
     Dates: start: 20110217, end: 20110415
  4. ITRACONAZOL [Concomitant]
     Route: 065
     Dates: start: 20110627
  5. ALLOPURINOL [Concomitant]
     Route: 065

REACTIONS (2)
  - Weight decreased [Recovered/Resolved with Sequelae]
  - Lung disorder [Recovered/Resolved with Sequelae]
